FAERS Safety Report 20364885 (Version 1)
Quarter: 2022Q1

REPORT INFORMATION
  Report Type: Report from Study
  Country: DO (occurrence: DO)
  Receive Date: 20220122
  Receipt Date: 20220122
  Transmission Date: 20220423
  Serious: Yes (Other)
  Sender: FDA-Public Use
  Company Number: DO-NOVARTISPH-NVSC2021DO267779

PATIENT
  Age: 80 Year
  Sex: Male

DRUGS (7)
  1. SACUBITRIL\VALSARTAN [Suspect]
     Active Substance: SACUBITRIL\VALSARTAN
     Indication: Product used for unknown indication
     Dosage: 50 MG  (STARTED 6 MONTHS AGO AND STOPPED 2 MONTHS AGO APPROXIMATELY)
     Route: 065
  2. SACUBITRIL\VALSARTAN [Suspect]
     Active Substance: SACUBITRIL\VALSARTAN
     Dosage: 100 MG (STARTED 2 MONTHS AGO APPROXIMATELY)
     Route: 065
  3. SACUBITRIL\VALSARTAN [Suspect]
     Active Substance: SACUBITRIL\VALSARTAN
     Dosage: 1 DOSAGE FORM, QD(50 MG, 1 YEAR AGO)
     Route: 065
     Dates: end: 202109
  4. SACUBITRIL\VALSARTAN [Suspect]
     Active Substance: SACUBITRIL\VALSARTAN
     Dosage: 100 MG
     Route: 065
     Dates: start: 202109, end: 20211222
  5. SACUBITRIL\VALSARTAN [Suspect]
     Active Substance: SACUBITRIL\VALSARTAN
     Dosage: 1 DOSAGE FORM, QD(50 MG)
     Route: 065
     Dates: start: 20211222
  6. VALSARTAN [Concomitant]
     Active Substance: VALSARTAN
     Indication: Cardiac disorder
     Dosage: 30 MG(1 YEARS AGO APPROXIMATELY)
     Route: 065
  7. OXIGEN [Concomitant]
     Indication: Cerebral disorder
     Dosage: 500 MG( 1 YEAR AGO APPROXIMATELY)
     Route: 065

REACTIONS (4)
  - Dementia Alzheimer^s type [Unknown]
  - Heart rate decreased [Recovered/Resolved]
  - Inappropriate schedule of product administration [Unknown]
  - Therapeutic response decreased [Unknown]

NARRATIVE: CASE EVENT DATE: 20211222
